FAERS Safety Report 5357725-3 (Version None)
Quarter: 2007Q2

REPORT INFORMATION
  Report Type: 
  Country: None (occurrence: None)
  Receive Date: 20070614
  Receipt Date: 20070606
  Transmission Date: 20071010
  Serious: No
  Sender: FDA-Public Use
  Company Number: US-BAXTER-2007BH005084

PATIENT
  Sex: Female

DRUGS (1)
  1. KIOVIG [Suspect]
     Indication: DRUG USE FOR UNKNOWN INDICATION
     Dosage: DOSE UNIT:UNKNOWN
     Route: 042

REACTIONS (2)
  - HERPES SIMPLEX SEROLOGY POSITIVE [None]
  - HIV TEST POSITIVE [None]
